FAERS Safety Report 10064475 (Version 3)
Quarter: 2014Q2

REPORT INFORMATION
  Report Type: Spontaneous
  Country: US (occurrence: US)
  Receive Date: 20140408
  Receipt Date: 20140625
  Transmission Date: 20141212
  Serious: Yes (Death, Life-Threatening, Hospitalization, Other)
  Sender: FDA-Public Use
  Company Number: US-MERCK-1404USA004163

PATIENT
  Sex: Male
  Weight: 71.2 kg

DRUGS (1)
  1. JANUVIA [Suspect]
     Indication: TYPE 2 DIABETES MELLITUS
     Dosage: 100 MG, QD
     Route: 048
     Dates: end: 20120708

REACTIONS (7)
  - Pancreatic carcinoma metastatic [Fatal]
  - Bile duct T-tube insertion [Unknown]
  - Prostatic calcification [Unknown]
  - Asthma [Unknown]
  - Hyperkalaemia [Unknown]
  - Aortic arteriosclerosis [Unknown]
  - Diaphragmatic hernia [Unknown]
